FAERS Safety Report 13111323 (Version 2)
Quarter: 2017Q1

REPORT INFORMATION
  Report Type: Spontaneous
  Country: US (occurrence: US)
  Receive Date: 20170112
  Receipt Date: 20170117
  Transmission Date: 20170428
  Serious: No
  Sender: FDA-Public Use
  Company Number: US-ACTELION-A-US2017-148132

PATIENT
  Age: 63 Year
  Sex: Female

DRUGS (11)
  1. POTASSIUM [Concomitant]
     Active Substance: POTASSIUM
     Dosage: 30 MEQ, QD
     Dates: start: 2016
  2. SILDENAFIL. [Concomitant]
     Active Substance: SILDENAFIL
     Dosage: 10 MG, TID
     Dates: start: 2015
  3. CLARITIN [Concomitant]
     Active Substance: LORATADINE
     Dosage: 10 MG, QD
     Dates: start: 2015
  4. VITAMIN D [Concomitant]
     Active Substance: CHOLECALCIFEROL
     Dosage: 500 MG, QD
     Dates: start: 201611
  5. LASIX [Concomitant]
     Active Substance: FUROSEMIDE
     Dosage: 40 MG, QD
     Dates: start: 2015
  6. SINGULAIR [Concomitant]
     Active Substance: MONTELUKAST SODIUM
     Dosage: 10 MG, QD
  7. OPSUMIT [Suspect]
     Active Substance: MACITENTAN
     Indication: PULMONARY ARTERIAL HYPERTENSION
     Dosage: 10 MG, QD
     Route: 048
     Dates: start: 20170101
  8. LEVOTHYROXINE. [Concomitant]
     Active Substance: LEVOTHYROXINE
     Dosage: 1050 MEQ, UNK
     Dates: start: 2008
  9. PROZAC [Concomitant]
     Active Substance: FLUOXETINE HYDROCHLORIDE
     Dosage: 40 MG, QD
     Dates: start: 2015
  10. METOPROLOL. [Concomitant]
     Active Substance: METOPROLOL
     Dosage: 50 MG, BID
     Dates: start: 201601
  11. MULTIVITAMIN [Concomitant]
     Active Substance: VITAMINS
     Dosage: UNK, QD

REACTIONS (7)
  - Oropharyngeal pain [Not Recovered/Not Resolved]
  - Malaise [Unknown]
  - Dyspnoea [Unknown]
  - Pain [Not Recovered/Not Resolved]
  - Influenza like illness [Not Recovered/Not Resolved]
  - Nasal congestion [Not Recovered/Not Resolved]
  - Headache [Not Recovered/Not Resolved]

NARRATIVE: CASE EVENT DATE: 20170102
